FAERS Safety Report 22725981 (Version 2)
Quarter: 2024Q1

REPORT INFORMATION
  Report Type: Other
  Country: US (occurrence: US)
  Receive Date: 20230719
  Receipt Date: 20240214
  Transmission Date: 20240409
  Serious: Yes (Hospitalization)
  Sender: FDA-Public Use
  Company Number: US-OrBion Pharmaceuticals Private Limited-2143914

PATIENT
  Age: 86 Year
  Sex: Male

DRUGS (3)
  1. MEMANTINE HYDROCHLORIDE [Suspect]
     Active Substance: MEMANTINE HYDROCHLORIDE
     Route: 048
  2. METOPROLOL SUCCINATE [Concomitant]
     Active Substance: METOPROLOL SUCCINATE
     Route: 065
  3. MECLIZINE [Concomitant]
     Active Substance: MECLIZINE HYDROCHLORIDE
     Route: 065

REACTIONS (15)
  - Echolalia [Recovered/Resolved]
  - Intentional product use issue [Unknown]
  - Overdose [Unknown]
  - Cerebral atrophy [Recovered/Resolved]
  - Ventricular extrasystoles [Recovered/Resolved]
  - Cerebrovascular disorder [Recovered/Resolved]
  - Mental status changes [Recovered/Resolved]
  - Hypertensive crisis [Recovered/Resolved]
  - Somnolence [Recovered/Resolved]
  - Mini mental status examination abnormal [Recovered/Resolved]
  - Abnormal behaviour [Recovered/Resolved]
  - Catatonia [Recovered/Resolved]
  - Hallucination, auditory [Recovered/Resolved]
  - Agitation [Recovered/Resolved]
  - Hypertension [Recovered/Resolved]
